FAERS Safety Report 4423817-6 (Version None)
Quarter: 2004Q3

REPORT INFORMATION
  Report Type: 
  Country: None (occurrence: None)
  Receive Date: 20040714
  Receipt Date: 20040323
  Transmission Date: 20050211
  Serious: Yes (Other)
  Sender: FDA-Public Use
  Company Number: HQWYE174526MAR04

PATIENT
  Age: 28 Year
  Sex: Female

DRUGS (1)
  1. ALAVERT [Suspect]
     Indication: HYPERSENSITIVITY
     Dosage: 1 TABLET, ONCE, ORAL
     Route: 048
     Dates: start: 20040101, end: 20040101

REACTIONS (2)
  - HEART RATE INCREASED [None]
  - UNEVALUABLE EVENT [None]
